FAERS Safety Report 9580521 (Version 4)
Quarter: 2014Q1

REPORT INFORMATION
  Report Type: Report from Study
  Country: US (occurrence: US)
  Receive Date: 20131002
  Receipt Date: 20140328
  Transmission Date: 20141002
  Serious: Yes (Congenital Anomaly)
  Sender: FDA-Public Use
  Company Number: US-ROCHE-1280274

PATIENT
  Sex: Male
  Weight: 2.1 kg

DRUGS (5)
  1. RIBAVIRIN [Suspect]
     Indication: PRODUCT USED FOR UNKNOWN INDICATION
     Route: 064
     Dates: start: 20111020, end: 20111115
  2. REYATAZ [Concomitant]
     Indication: HIV INFECTION
     Route: 064
  3. NORVIR [Concomitant]
     Indication: HIV INFECTION
     Route: 064
  4. TRUVADA [Concomitant]
     Indication: HIV INFECTION
     Dosage: 200-300 MG
     Route: 064
  5. PROVENTIL HFA [Concomitant]
     Indication: ASTHMA
     Route: 064

REACTIONS (2)
  - Deafness congenital [Not Recovered/Not Resolved]
  - Maternal exposure timing unspecified [Unknown]
